FAERS Safety Report 14513801 (Version 2)
Quarter: 2019Q1

REPORT INFORMATION
  Report Type: Spontaneous
  Country: US (occurrence: US)
  Receive Date: 20180209
  Receipt Date: 20190115
  Transmission Date: 20190417
  Serious: No
  Sender: FDA-Public Use
  Company Number: US-ALLERGAN-1759156US

PATIENT
  Sex: Female

DRUGS (4)
  1. REFRESH OPTIVE [Concomitant]
     Active Substance: CARBOXYMETHYLCELLULOSE SODIUM\GLYCERIN
     Indication: PRODUCT USED FOR UNKNOWN INDICATION
     Dosage: UNK
     Route: 047
  2. RESTASIS [Suspect]
     Active Substance: CYCLOSPORINE
     Indication: DRY EYE
     Dosage: 2 GTT, BID
     Route: 047
     Dates: start: 20170928
  3. RESTASIS [Suspect]
     Active Substance: CYCLOSPORINE
     Indication: CORNEAL OEDEMA
  4. VITAMINS [Concomitant]
     Active Substance: VITAMINS
     Dosage: UNK
     Route: 065

REACTIONS (4)
  - Accidental exposure to product [Unknown]
  - Drug ineffective [Unknown]
  - Product container issue [Unknown]
  - Product packaging quantity issue [Unknown]
